FAERS Safety Report 7151395-X (Version None)
Quarter: 2010Q4

REPORT INFORMATION
  Report Type: 
  Country: None (occurrence: None)
  Receive Date: 20101210
  Receipt Date: 20101203
  Transmission Date: 20110411
  Serious: Yes (Other)
  Sender: FDA-Public Use
  Company Number: US-MERCK-1012USA01153

PATIENT
  Age: 63 Year
  Sex: Female

DRUGS (2)
  1. FOSAMAX [Suspect]
     Route: 048
     Dates: start: 20030101, end: 20051101
  2. BONIVA [Suspect]
     Route: 065
     Dates: start: 20060101, end: 20081201

REACTIONS (2)
  - FEMUR FRACTURE [None]
  - LOW TURNOVER OSTEOPATHY [None]
